FAERS Safety Report 7090656-X (Version None)
Quarter: 2010Q4

REPORT INFORMATION
  Report Type: 
  Country: None (occurrence: None)
  Receive Date: 20101109
  Receipt Date: 20090511
  Transmission Date: 20110411
  Serious: No
  Sender: FDA-Public Use
  Company Number: US-KINGPHARMUSA00001-K200900572

PATIENT
  Age: 54 Year
  Sex: Female
  Weight: 68.027 kg

DRUGS (4)
  1. FLECTOR [Suspect]
     Indication: SKELETAL INJURY
     Dosage: 1 PATCH, BID
     Route: 061
     Dates: start: 20090415, end: 20090417
  2. FLECTOR [Suspect]
     Dosage: 1 PATCH, BID
     Route: 061
     Dates: start: 20090501, end: 20090501
  3. ASPIRIN [Interacting]
     Dosage: 81 MG, UNK
     Route: 048
  4. LIPITOR [Concomitant]
     Indication: BLOOD CHOLESTEROL INCREASED
     Dosage: UNK
     Route: 048

REACTIONS (1)
  - BREAST PAIN [None]
